FAERS Safety Report 8578651-2 (Version None)
Quarter: 2012Q3

REPORT INFORMATION
  Report Type: 
  Country: None (occurrence: None)
  Receive Date: 20120726
  Receipt Date: 20120717
  Transmission Date: 20120928
  Serious: Yes (Hospitalization, Other)
  Sender: FDA-Public Use
  Company Number: AUR-APL-2012-02390

PATIENT
  Age: 52 Year
  Sex: Male

DRUGS (3)
  1. SIMVASTATIN [Suspect]
     Indication: HYPERLIPIDAEMIA
     Dosage: UNKNOWN
  2. VALSARTAN [Concomitant]
  3. HYDROCHLOROTHIAZIDE [Concomitant]

REACTIONS (8)
  - MYOSITIS [None]
  - OEDEMA [None]
  - COMPARTMENT SYNDROME [None]
  - MOBILITY DECREASED [None]
  - AGITATION [None]
  - ERYTHEMA [None]
  - ARTHRALGIA [None]
  - HYPOAESTHESIA [None]
